FAERS Safety Report 15276944 (Version 1)
Quarter: 2018Q3

REPORT INFORMATION
  Report Type: Spontaneous
  Country: ES (occurrence: ES)
  Receive Date: 20180814
  Receipt Date: 20180814
  Transmission Date: 20181010
  Serious: Yes (Hospitalization, Other)
  Sender: FDA-Public Use
  Company Number: ES-GLAXOSMITHKLINE-ES2018142414

PATIENT
  Age: 67 Year
  Sex: Female
  Weight: 70 kg

DRUGS (8)
  1. ATORVASTATIN [Concomitant]
     Active Substance: ATORVASTATIN
     Indication: PRODUCT USED FOR UNKNOWN INDICATION
     Dosage: 10 MG. 1 A DAY (NIGHT)
     Route: 048
  2. TAVANIC [Suspect]
     Active Substance: LEVOFLOXACIN
     Indication: BRONCHITIS
     Dosage: 1 AL DIA
     Route: 048
     Dates: start: 20180302, end: 20180315
  3. VENTOLIN [Concomitant]
     Active Substance: ALBUTEROL SULFATE
     Indication: PRODUCT USED FOR UNKNOWN INDICATION
     Dosage: 1 EACHS 8 HOURS
     Route: 065
  4. ZINNAT [Suspect]
     Active Substance: CEFUROXIME AXETIL
     Indication: BRONCHITIS
     Dosage: 500 MG, QD
     Route: 048
     Dates: start: 20180304, end: 20180304
  5. ZITROMAX [Suspect]
     Active Substance: AZITHROMYCIN
     Indication: PRODUCT USED FOR UNKNOWN INDICATION
     Dosage: UNK
     Route: 065
     Dates: start: 20180226, end: 20180304
  6. EMCORETIC [Concomitant]
     Active Substance: BISOPROLOL FUMARATE\HYDROCHLOROTHIAZIDE
     Indication: PRODUCT USED FOR UNKNOWN INDICATION
     Dosage: 10 MG/ 25 MG
     Route: 048
  7. PULMICORT TURBUHALER [Concomitant]
     Active Substance: BUDESONIDE
     Indication: PRODUCT USED FOR UNKNOWN INDICATION
     Dosage: 1/12 HORAS
     Route: 065
  8. OPENVAS [Concomitant]
     Indication: PRODUCT USED FOR UNKNOWN INDICATION
     Dosage: 40 MG. 1 A DAY (NIGHT)
     Route: 048

REACTIONS (3)
  - Palpitations [Recovered/Resolved]
  - Tachycardia [Recovered/Resolved]
  - Atrial fibrillation [Recovered/Resolved]

NARRATIVE: CASE EVENT DATE: 20180304
